FAERS Safety Report 11145730 (Version 1)
Quarter: 2015Q2

REPORT INFORMATION
  Report Type: Spontaneous
  Country: FR (occurrence: None)
  Receive Date: 20150526
  Receipt Date: 20150526
  Transmission Date: 20150821
  Serious: Yes (Death, Hospitalization)
  Sender: FDA-Public Use
  Company Number: FK201502365

PATIENT
  Age: 75 Year
  Sex: Female

DRUGS (5)
  1. IFOSFAMIDE (MANUFACTURER UNKNOWN) (IFOSFAMIDE) (IFOSFAMIDE) [Suspect]
     Active Substance: IFOSFAMIDE
     Indication: RHABDOMYOSARCOMA
     Dates: start: 201202
  2. IFOSFAMIDE (MANUFACTURER UNKNOWN) (IFOSFAMIDE) (IFOSFAMIDE) [Suspect]
     Active Substance: IFOSFAMIDE
     Indication: METASTASES TO LUNG
     Dates: start: 201202
  3. STEROIDS (CORTICOSTEROIDS) [Concomitant]
     Active Substance: UNSPECIFIED INGREDIENT
  4. APREPITANT (APREPITANT) (APREPITANT) [Suspect]
     Active Substance: APREPITANT
     Indication: METASTASES TO LUNG
     Dates: start: 201202
  5. APREPITANT (APREPITANT) (APREPITANT) [Suspect]
     Active Substance: APREPITANT
     Indication: RHABDOMYOSARCOMA
     Dates: start: 201202

REACTIONS (6)
  - Pancytopenia [None]
  - Renal failure [None]
  - Lung infection [None]
  - Encephalopathy [None]
  - Sepsis [None]
  - Drug interaction [None]
